FAERS Safety Report 8837408 (Version 5)
Quarter: 2013Q1

REPORT INFORMATION
  Report Type: Spontaneous
  Country: US (occurrence: US)
  Receive Date: 20121012
  Receipt Date: 20130129
  Transmission Date: 20140127
  Serious: No
  Sender: FDA-Public Use
  Company Number: US-PFIZER INC-2012249310

PATIENT
  Age: 59 Year
  Sex: Male
  Weight: 86.17 kg

DRUGS (9)
  1. SUTENT [Suspect]
     Indication: RENAL CANCER
     Dosage: 50 MG, 1X/DAY
     Route: 048
  2. SUTENT [Suspect]
     Dosage: 50 MG, DAILY, CYCLIC(4 WEEKS ON THERAPY FOLLOWED BY TWO WEEKS OFF THERAPY)
     Dates: start: 2012, end: 201301
  3. PRILOSEC [Concomitant]
     Dosage: UNK
  4. FLOMAX [Concomitant]
     Dosage: UNK
  5. LANTUS [Concomitant]
     Dosage: UNK, EVERYDAY
  6. LISINOPRIL [Concomitant]
  7. HYDROCHLOROTHIAZIDE [Concomitant]
     Dosage: UNK
  8. NORCO [Concomitant]
     Dosage: UNK
  9. BABY ASPIRIN [Concomitant]
     Dosage: UNK

REACTIONS (23)
  - Bone disorder [Unknown]
  - Lung disorder [Unknown]
  - Constipation [Unknown]
  - Malaise [Unknown]
  - Eructation [Unknown]
  - Dysgeusia [Unknown]
  - Nausea [Unknown]
  - Abdominal pain upper [Unknown]
  - Lip swelling [Unknown]
  - Arthralgia [Unknown]
  - Pain in extremity [Unknown]
  - Back pain [Unknown]
  - Decreased appetite [Unknown]
  - Diarrhoea [Unknown]
  - Asthenia [Unknown]
  - Feeling abnormal [Unknown]
  - Arthralgia [Unknown]
  - Arthritis [Unknown]
  - Fatigue [Unknown]
  - Stubbornness [Unknown]
  - Dehydration [Unknown]
  - Skin exfoliation [Unknown]
  - Skin exfoliation [Unknown]
